FAERS Safety Report 21059649 (Version 1)
Quarter: 2022Q3

REPORT INFORMATION
  Report Type: Spontaneous
  Country: US (occurrence: US)
  Receive Date: 20220708
  Receipt Date: 20220708
  Transmission Date: 20221027
  Serious: No
  Sender: FDA-Public Use
  Company Number: US-PFIZER INC-202200938545

PATIENT
  Age: 65 Year
  Sex: Male

DRUGS (2)
  1. INLYTA [Suspect]
     Active Substance: AXITINIB
     Dosage: 3 MG, 2X/DAY (TAKE 3 TABLETS TWICE DAILY FOR 21 DAYS)
  2. INLYTA [Suspect]
     Active Substance: AXITINIB
     Dosage: 2 MG, 2X/DAY (TWO 1MG TABLETS TWICE A DAY)

REACTIONS (1)
  - Blister [Unknown]

NARRATIVE: CASE EVENT DATE: 20220101
